FAERS Safety Report 6774567-2 (Version None)
Quarter: 2010Q2

REPORT INFORMATION
  Report Type: 
  Country: None (occurrence: None)
  Receive Date: 20100617
  Receipt Date: 20100608
  Transmission Date: 20101027
  Serious: Yes (Death, Hospitalization)
  Sender: FDA-Public Use
  Company Number: GR-MPIJNJ-2010-02303

PATIENT

DRUGS (5)
  1. VELCADE [Suspect]
     Indication: MULTIPLE MYELOMA
     Dosage: 1.5 MG, UNK
     Route: 042
     Dates: start: 20100120, end: 20100317
  2. DOXORUBICIN HCL [Suspect]
     Indication: MULTIPLE MYELOMA
     Dosage: 1.92 MG/M2, UNK
     Route: 042
     Dates: start: 20100120, end: 20100317
  3. DEXAMETHASONE [Suspect]
     Indication: MULTIPLE MYELOMA
     Dosage: 40 MG, UNK
     Route: 048
     Dates: start: 20100120, end: 20100317
  4. HEPARIN [Concomitant]
     Indication: THROMBOSIS PROPHYLAXIS
  5. EPOGEN [Concomitant]

REACTIONS (1)
  - OPPORTUNISTIC INFECTION [None]
